FAERS Safety Report 6253687-5 (Version None)
Quarter: 2009Q2

REPORT INFORMATION
  Report Type: 
  Country: None (occurrence: None)
  Receive Date: 20090630
  Receipt Date: 20090619
  Transmission Date: 20091009
  Serious: Yes (Life-Threatening, Hospitalization, Disabling, Other)
  Sender: FDA-Public Use
  Company Number: 2009AL004099

PATIENT
  Sex: Female

DRUGS (1)
  1. PHENYTOIN ORAL SUSPENSION  (ALPHARMA) [Suspect]
     Dosage: PO
     Route: 048
     Dates: start: 20070401

REACTIONS (18)
  - ACUTE GENERALISED EXANTHEMATOUS PUSTULOSIS [None]
  - ANHEDONIA [None]
  - ANXIETY [None]
  - BLISTER [None]
  - DRUG ERUPTION [None]
  - DRUG RASH WITH EOSINOPHILIA AND SYSTEMIC SYMPTOMS [None]
  - ECONOMIC PROBLEM [None]
  - EMOTIONAL DISTRESS [None]
  - ERYTHEMA MULTIFORME [None]
  - FEAR [None]
  - FEELING ABNORMAL [None]
  - INJURY [None]
  - PAIN [None]
  - SCAR [None]
  - SKIN DISCOLOURATION [None]
  - SKIN REACTION [None]
  - STEVENS-JOHNSON SYNDROME [None]
  - TOXIC EPIDERMAL NECROLYSIS [None]
